FAERS Safety Report 13613633 (Version 2)
Quarter: 2017Q2

REPORT INFORMATION
  Report Type: Report from Study
  Country: CO (occurrence: CO)
  Receive Date: 20170605
  Receipt Date: 20170619
  Transmission Date: 20170830
  Serious: Yes (Hospitalization, Other)
  Sender: FDA-Public Use
  Company Number: CO-ELI_LILLY_AND_COMPANY-CO201706001425

PATIENT
  Age: 22 Year
  Sex: Female

DRUGS (1)
  1. CETUXIMAB. [Suspect]
     Active Substance: CETUXIMAB
     Indication: SQUAMOUS CELL CARCINOMA OF HEAD AND NECK
     Dosage: UNK, UNKNOWN
     Route: 065
     Dates: start: 20170401

REACTIONS (5)
  - Radiation dysphagia [Unknown]
  - Mucosal inflammation [Unknown]
  - Radiation skin injury [Unknown]
  - Disease recurrence [Unknown]
  - Radiation mucositis [Unknown]

NARRATIVE: CASE EVENT DATE: 201705
